FAERS Safety Report 5939622-5 (Version None)
Quarter: 2008Q4

REPORT INFORMATION
  Report Type: 
  Country: None (occurrence: None)
  Receive Date: 20081030
  Receipt Date: 20081030
  Transmission Date: 20090506
  Serious: Yes (Hospitalization)
  Sender: FDA-Public Use
  Company Number: None

PATIENT
  Age: 83 Year
  Sex: Male

DRUGS (9)
  1. CARBOPLATIN [Suspect]
     Dates: start: 20070906, end: 20071123
  2. TAXOTERE [Suspect]
     Dates: start: 20070906, end: 20071123
  3. TYLENOL W/ CODEINE NO. 3 [Concomitant]
  4. PRILOSEC [Concomitant]
  5. VIAGRA [Concomitant]
  6. PALONSETRON [Concomitant]
  7. DECADRON [Concomitant]
  8. PREDNISONE TAB [Concomitant]
  9. VITAMN SUPPLEMENTS [Concomitant]

REACTIONS (10)
  - ALANINE AMINOTRANSFERASE INCREASED [None]
  - ASPARTATE AMINOTRANSFERASE INCREASED [None]
  - BLOOD ALKALINE PHOSPHATASE INCREASED [None]
  - BLOOD BILIRUBIN INCREASED [None]
  - HEPATOCELLULAR INJURY [None]
  - INTERNATIONAL NORMALISED RATIO INCREASED [None]
  - LIVER INJURY [None]
  - PNEUMONIA [None]
  - RADIATION PNEUMONITIS [None]
  - WEIGHT DECREASED [None]
